FAERS Safety Report 4672894-6 (Version None)
Quarter: 2005Q2

REPORT INFORMATION
  Report Type: 
  Country: None (occurrence: None)
  Receive Date: 20050524
  Receipt Date: 20050512
  Transmission Date: 20051028
  Serious: Yes (Other)
  Sender: FDA-Public Use
  Company Number: 2005073367

PATIENT
  Age: 19 Year
  Sex: Female
  Weight: 58.9676 kg

DRUGS (1)
  1. DRAMAMINE [Suspect]
     Dosage: 3 VIALS ONCE ORAL
     Route: 048
     Dates: start: 20050501, end: 20050501

REACTIONS (4)
  - ADVERSE EVENT [None]
  - AMNESIA [None]
  - SENSATION OF HEAVINESS [None]
  - UNEVALUABLE EVENT [None]
